FAERS Safety Report 19902298 (Version 2)
Quarter: 2021Q4

REPORT INFORMATION
  Report Type: Spontaneous
  Country: JP (occurrence: JP)
  Receive Date: 20210930
  Receipt Date: 20211028
  Transmission Date: 20220304
  Serious: Yes (Hospitalization)
  Sender: FDA-Public Use
  Company Number: NVSJ2021JP014551

PATIENT
  Age: 59 Year
  Sex: Female

DRUGS (4)
  1. MAYZENT [Suspect]
     Active Substance: SIPONIMOD
     Indication: Secondary progressive multiple sclerosis
     Dosage: 0.25 MG
     Route: 048
     Dates: start: 20210916, end: 20210920
  2. CORTRIL [Concomitant]
     Active Substance: HYDROCORTISONE
     Indication: Product used for unknown indication
     Dosage: 20 MG
     Route: 048
     Dates: start: 201209
  3. CEFTRIAXONE SODIUM [Concomitant]
     Active Substance: CEFTRIAXONE SODIUM
     Indication: Product used for unknown indication
     Dosage: 2000 MG
     Route: 042
     Dates: start: 20210920, end: 20210921
  4. CEFMETAZOLE [Concomitant]
     Active Substance: CEFMETAZOLE
     Indication: Product used for unknown indication
     Dosage: 4000 MG
     Route: 042
     Dates: start: 20210922, end: 20210927

REACTIONS (2)
  - Pyelonephritis [Recovered/Resolved]
  - Pyrexia [Recovered/Resolved]

NARRATIVE: CASE EVENT DATE: 20210919
